FAERS Safety Report 9024772 (Version 2)
Quarter: 2013Q3

REPORT INFORMATION
  Report Type: Spontaneous
  Country: US (occurrence: None)
  Receive Date: 20121231
  Receipt Date: 20130815
  Transmission Date: 20140515
  Serious: Yes (Other)
  Sender: FDA-Public Use
  Company Number: ADR-2012-02244

PATIENT
  Sex: Male

DRUGS (3)
  1. LIORESAL [Suspect]
     Indication: MUSCLE SPASTICITY
     Dosage: 1315 MCG/DAY
  2. CIPRO [Concomitant]
  3. BACTRIM [Concomitant]

REACTIONS (10)
  - Muscle spasms [None]
  - Paraesthesia [None]
  - Urinary tract infection [None]
  - Mental status changes [None]
  - Performance status decreased [None]
  - Impaired healing [None]
  - Paraesthesia [None]
  - Muscle spasticity [None]
  - Wound [None]
  - Impaired healing [None]
